FAERS Safety Report 13472676 (Version 1)
Quarter: 2017Q2

REPORT INFORMATION
  Report Type: Spontaneous
  Country: US (occurrence: US)
  Receive Date: 20170424
  Receipt Date: 20170424
  Transmission Date: 20170830
  Serious: Yes (Death, Hospitalization, Other)
  Sender: FDA-Public Use
  Company Number: US-PFIZER INC-2017172274

PATIENT
  Age: 81 Year
  Sex: Female
  Weight: 71 kg

DRUGS (6)
  1. IBRANCE [Suspect]
     Active Substance: PALBOCICLIB
     Indication: BREAST CANCER METASTATIC
     Dosage: 75 MG, CYCLIC; 75MG ONCE A DAY FOR 3 WEEKS THEN OFF FOR 1 WEEK
     Route: 048
  2. FASLODEX [Concomitant]
     Active Substance: FULVESTRANT
     Indication: BREAST CANCER
     Dosage: 1 DF, MONTHLY
  3. SEREX [Concomitant]
     Indication: DEPRESSION
     Dosage: UNK UNK, 2X/DAY
     Route: 048
  4. NAMENDA [Concomitant]
     Active Substance: MEMANTINE HYDROCHLORIDE
     Indication: DEMENTIA
     Dosage: 1 DF, 1X/DAY
     Route: 048
  5. SEROQUEL [Concomitant]
     Active Substance: QUETIAPINE FUMARATE
     Indication: BIPOLAR DISORDER
     Dosage: UNK UNK, 1X/DAY
     Route: 048
  6. ARICEPT [Concomitant]
     Active Substance: DONEPEZIL HYDROCHLORIDE
     Indication: DEMENTIA
     Dosage: 1 TABLET, DAILY
     Route: 048

REACTIONS (4)
  - Infection [Unknown]
  - Oesophageal perforation [Unknown]
  - Aspiration [Fatal]
  - Asthenia [Unknown]

NARRATIVE: CASE EVENT DATE: 20170222
